FAERS Safety Report 15598833 (Version 1)
Quarter: 2018Q4

REPORT INFORMATION
  Report Type: Spontaneous
  Country: US (occurrence: US)
  Receive Date: 20181108
  Receipt Date: 20181108
  Transmission Date: 20190205
  Serious: Yes (Other)
  Sender: FDA-Public Use
  Company Number: US-AKORN PHARMACEUTICALS-2018AKN01698

PATIENT
  Age: 41 Year
  Sex: Male
  Weight: 70 kg

DRUGS (4)
  1. MYORISAN [Suspect]
     Active Substance: ISOTRETINOIN
     Dosage: 60 MG, 1X/DAY
     Dates: start: 20180813, end: 201809
  2. IBUPROFEN. [Concomitant]
     Active Substance: IBUPROFEN
  3. ZYRTEC [Concomitant]
     Active Substance: CETIRIZINE HYDROCHLORIDE
  4. MYORISAN [Suspect]
     Active Substance: ISOTRETINOIN
     Indication: ACNE CONGLOBATA
     Dosage: 30 MG, 1X/DAY
     Dates: start: 20180703, end: 2018

REACTIONS (3)
  - Drug ineffective for unapproved indication [Recovered/Resolved]
  - Off label use [Recovered/Resolved]
  - Cellulitis [Not Recovered/Not Resolved]

NARRATIVE: CASE EVENT DATE: 201807
